FAERS Safety Report 8805941 (Version 1)
Quarter: 2012Q4

REPORT INFORMATION
  Report Type: Spontaneous
  Country: CA (occurrence: None)
  Receive Date: 20120918
  Receipt Date: 20120918
  Transmission Date: 20130627
  Serious: Yes (Other)
  Sender: FDA-Public Use
  Company Number: DSA_59593_2012

PATIENT
  Age: 25 Year
  Sex: Female

DRUGS (4)
  1. FLUOROURACIL (FLUOROURACIL) [Suspect]
     Indication: BREAST CANCER
     Dosage: (DF)
  2. CYCLOPHOSPHAMIDE [Suspect]
     Dosage: (DF)
  3. EPIRUBICIN (EPIRUBICIN) (EPIRUBICIN) [Suspect]
     Dosage: (DF)
  4. THERAPEUTIC RADIOPHARMACEUTICALS (THERAPEUTIC RADIOPHARMACEUTICALS) [Suspect]
     Dosage: (DF)

REACTIONS (1)
  - Acute lymphocytic leukaemia [None]
